FAERS Safety Report 18384875 (Version 1)
Quarter: 2020Q4

REPORT INFORMATION
  Report Type: Spontaneous
  Country: RU (occurrence: RU)
  Receive Date: 20201014
  Receipt Date: 20201014
  Transmission Date: 20210114
  Serious: Yes (Other)
  Sender: FDA-Public Use
  Company Number: NVSC2020RU273515

PATIENT
  Age: 29 Year
  Sex: Female
  Weight: 85 kg

DRUGS (5)
  1. MEROPENEM. [Concomitant]
     Active Substance: MEROPENEM
     Indication: GENITAL INFECTION FEMALE
     Dosage: 1 G, TID
     Route: 041
     Dates: start: 20201005
  2. CLEXANE [Concomitant]
     Active Substance: ENOXAPARIN SODIUM
     Indication: THROMBOSIS PROPHYLAXIS
     Dosage: 40 MG, QD
     Route: 058
     Dates: start: 20201006
  3. EDICIN [Suspect]
     Active Substance: VANCOMYCIN HYDROCHLORIDE
     Indication: GENITAL INFECTION FEMALE
     Dosage: 1 G, BID
     Route: 041
     Dates: start: 20201005
  4. QUAMATEL [Concomitant]
     Active Substance: FAMOTIDINE
     Indication: GASTRIC ULCER
     Dosage: 20 MG, QD
     Route: 041
     Dates: start: 20201005
  5. LIKFERR [Concomitant]
     Indication: ANAEMIA
     Dosage: 200 MG, QD
     Route: 041
     Dates: start: 20201005

REACTIONS (2)
  - Tachycardia [Recovering/Resolving]
  - Pruritus [Recovering/Resolving]

NARRATIVE: CASE EVENT DATE: 20201005
